FAERS Safety Report 9370289 (Version 1)
Quarter: 2013Q2

REPORT INFORMATION
  Report Type: Spontaneous
  Country: US (occurrence: US)
  Receive Date: 20130626
  Receipt Date: 20130626
  Transmission Date: 20140414
  Serious: Yes (Death, Hospitalization)
  Sender: FDA-Public Use
  Company Number: US-INCYTE CORPORATION-2013IN000989

PATIENT
  Age: 78 Year
  Sex: Male

DRUGS (9)
  1. JAKAFI [Suspect]
     Indication: MYELOFIBROSIS
     Dosage: 20 MG, BID
     Dates: start: 20130416, end: 2013
  2. JAKAFI [Suspect]
     Dosage: 10 MG, BID
     Route: 048
     Dates: start: 2013, end: 2013
  3. PREDNISONE [Concomitant]
  4. FLOMAX [Concomitant]
  5. COREG [Concomitant]
  6. DIGOXIN [Concomitant]
  7. FUROSEMIDE [Concomitant]
  8. SPIRONOLACTONE [Concomitant]
  9. FERROUS SULFATE [Concomitant]

REACTIONS (4)
  - Septic shock [Fatal]
  - Pain in extremity [None]
  - Weight decreased [Unknown]
  - Platelet count decreased [None]
